FAERS Safety Report 6007085-X (Version None)
Quarter: 2008Q4

REPORT INFORMATION
  Report Type: 
  Country: None (occurrence: None)
  Receive Date: 20081217
  Receipt Date: 20080108
  Transmission Date: 20090506
  Serious: Yes (Hospitalization)
  Sender: FDA-Public Use
  Company Number: US-ASTRAZENECA-2008UW00592

PATIENT
  Sex: Male

DRUGS (2)
  1. CRESTOR [Suspect]
     Indication: BLOOD CHOLESTEROL INCREASED
     Route: 048
     Dates: start: 20061001
  2. CRESTOR [Suspect]
     Dosage: DOSE INCREASED
     Route: 048
     Dates: start: 20061201

REACTIONS (3)
  - FATIGUE [None]
  - MUSCULAR WEAKNESS [None]
  - RHABDOMYOLYSIS [None]
